FAERS Safety Report 24998537 (Version 2)
Quarter: 2025Q2

REPORT INFORMATION
  Report Type: Report from Study
  Country: US (occurrence: US)
  Receive Date: 20250222
  Receipt Date: 20250515
  Transmission Date: 20250716
  Serious: No
  Sender: SANOFI AVENTIS
  Company Number: US-SA-2025SA046042

PATIENT
  Age: 67 Year
  Sex: Male

DRUGS (2)
  1. CABAZITAXEL [Suspect]
     Active Substance: CABAZITAXEL
     Indication: Prostate cancer
     Dosage: 60 MG, Q3W
  2. CABAZITAXEL [Suspect]
     Active Substance: CABAZITAXEL
     Dosage: 57 MG, Q3W
     Dates: start: 20240918

REACTIONS (1)
  - Off label use [Unknown]
